FAERS Safety Report 18506257 (Version 4)
Quarter: 2025Q2

REPORT INFORMATION
  Report Type: Report from Study
  Country: CA (occurrence: CA)
  Receive Date: 20201116
  Receipt Date: 20250506
  Transmission Date: 20250716
  Serious: Yes (Other)
  Sender: TAKEDA
  Company Number: CA-SHIRE-CA201936811

PATIENT
  Age: 42 Year
  Sex: Female
  Weight: 60.9 kg

DRUGS (6)
  1. HUMAN IMMUNOGLOBULIN G [Suspect]
     Active Substance: HUMAN IMMUNOGLOBULIN G
     Indication: Primary immunodeficiency syndrome
     Dosage: 10 GRAM, 1/WEEK
     Dates: start: 20191026
  2. HUMAN IMMUNOGLOBULIN G [Suspect]
     Active Substance: HUMAN IMMUNOGLOBULIN G
     Indication: Meningitis
     Dosage: 6 GRAM, 1/WEEK
     Dates: start: 20201107
  3. HUMAN IMMUNOGLOBULIN G [Suspect]
     Active Substance: HUMAN IMMUNOGLOBULIN G
     Indication: Infertility
     Dosage: 6 GRAM, 1/WEEK
  4. HUMAN IMMUNOGLOBULIN G [Suspect]
     Active Substance: HUMAN IMMUNOGLOBULIN G
     Dosage: 6 GRAM, 1/WEEK
     Dates: end: 202101
  5. HUMAN IMMUNOGLOBULIN G [Suspect]
     Active Substance: HUMAN IMMUNOGLOBULIN G
  6. HUMIRA [Concomitant]
     Active Substance: ADALIMUMAB
     Indication: Product used for unknown indication

REACTIONS (15)
  - Nasopharyngitis [Recovered/Resolved]
  - Erythema [Recovered/Resolved]
  - Rash [Unknown]
  - Injection site pain [Unknown]
  - Dry skin [Recovered/Resolved]
  - Eructation [Unknown]
  - Device issue [Unknown]
  - Needle issue [Unknown]
  - Colonoscopy abnormal [Unknown]
  - Off label use [Unknown]
  - Pregnancy [Unknown]
  - Product dose omission issue [Unknown]
  - Fear [Unknown]
  - Inappropriate schedule of product administration [Unknown]
  - Anxiety [Unknown]

NARRATIVE: CASE EVENT DATE: 20191026
